FAERS Safety Report 16041787 (Version 1)
Quarter: 2019Q1

REPORT INFORMATION
  Report Type: Spontaneous
  Country: US (occurrence: US)
  Receive Date: 20190306
  Receipt Date: 20190306
  Transmission Date: 20190418
  Serious: No
  Sender: FDA-Public Use
  Company Number: US-PFIZER INC-2019002565

PATIENT
  Age: 71 Year
  Sex: Female

DRUGS (2)
  1. XELJANZ XR [Suspect]
     Active Substance: TOFACITINIB CITRATE
     Dosage: 11 MG, ONCE A DAY
  2. AZATHIOPRINE. [Suspect]
     Active Substance: AZATHIOPRINE
     Dosage: 100 MG, ONCE A DAY
     Route: 048

REACTIONS (5)
  - Product use issue [Unknown]
  - Arthritis [Unknown]
  - Musculoskeletal pain [Unknown]
  - Anxiety [Unknown]
  - Crying [Unknown]
